FAERS Safety Report 6510202-6 (Version None)
Quarter: 2009Q4

REPORT INFORMATION
  Report Type: 
  Country: None (occurrence: None)
  Receive Date: 20091222
  Receipt Date: 20091215
  Transmission Date: 20100525
  Serious: Yes (Hospitalization, Other)
  Sender: FDA-Public Use
  Company Number: US-JNJFOC-20090907583

PATIENT
  Sex: Female
  Weight: 68.04 kg

DRUGS (10)
  1. REMICADE [Suspect]
     Route: 042
     Dates: start: 20080425, end: 20090630
  2. REMICADE [Suspect]
     Route: 042
     Dates: start: 20080425, end: 20090630
  3. REMICADE [Suspect]
     Route: 042
     Dates: start: 20080425, end: 20090630
  4. REMICADE [Suspect]
     Indication: CROHN'S DISEASE
     Route: 042
     Dates: start: 20080425, end: 20090630
  5. FLUOXETINE [Concomitant]
     Indication: DEPRESSION
     Route: 042
  6. ADVAIR DISKUS 100/50 [Concomitant]
     Indication: ASTHMA
  7. SINGULAIR [Concomitant]
     Indication: ASTHMA
  8. IMURAN [Concomitant]
     Indication: CROHN'S DISEASE
     Dosage: 100MG-50MG DAILY
  9. MICRONOR [Concomitant]
     Indication: CONTRACEPTION
  10. CALCIUM [Concomitant]
     Indication: NUTRITIONAL SUPPORT

REACTIONS (1)
  - THYROID CANCER [None]
